FAERS Safety Report 18278979 (Version 2)
Quarter: 2020Q3

REPORT INFORMATION
  Report Type: Spontaneous
  Country: US (occurrence: US)
  Receive Date: 20200917
  Receipt Date: 20200928
  Transmission Date: 20201103
  Serious: No
  Sender: FDA-Public Use
  Company Number: US-ASTRAZENECA-2020SF16234

PATIENT
  Sex: Female

DRUGS (2)
  1. PROAIR HFA [Concomitant]
     Active Substance: ALBUTEROL SULFATE
     Route: 065
  2. BEVESPI AEROSPHERE [Suspect]
     Active Substance: FORMOTEROL FUMARATE\GLYCOPYRROLATE
     Dosage: TWO PUFFS TWICE EACH DAY
     Route: 055

REACTIONS (7)
  - Rash [Unknown]
  - Dysphonia [Unknown]
  - Visual acuity reduced [Unknown]
  - Chapped lips [Unknown]
  - Device issue [Unknown]
  - Wrong technique in device usage process [Unknown]
  - Therapeutic product effect decreased [Not Recovered/Not Resolved]
